FAERS Safety Report 5647875-6 (Version None)
Quarter: 2008Q1

REPORT INFORMATION
  Report Type: 
  Country: None (occurrence: None)
  Receive Date: 20080303
  Receipt Date: 20080220
  Transmission Date: 20080703
  Serious: Yes (Other)
  Sender: FDA-Public Use
  Company Number: US-PFIZER INC-2008017657

PATIENT
  Sex: Male
  Weight: 70.5 kg

DRUGS (7)
  1. CHANTIX [Suspect]
     Indication: SMOKING CESSATION THERAPY
     Route: 048
  2. NEXIUM [Concomitant]
  3. SUCRALFATE [Concomitant]
  4. CLONAZEPAM [Concomitant]
  5. ZYRTEC [Concomitant]
  6. ONE-A-DAY [Concomitant]
  7. COLACE [Concomitant]

REACTIONS (1)
  - ALCOHOL USE [None]
